FAERS Safety Report 20374260 (Version 1)
Quarter: 2022Q1

REPORT INFORMATION
  Report Type: Spontaneous
  Country: CH (occurrence: CH)
  Receive Date: 20220125
  Receipt Date: 20220125
  Transmission Date: 20220423
  Serious: Yes (Other)
  Sender: FDA-Public Use
  Company Number: CH-NOVARTISPH-NVSC2022CH012016

PATIENT
  Age: 73 Year
  Sex: Female

DRUGS (2)
  1. CIPROFLOXACIN [Interacting]
     Active Substance: CIPROFLOXACIN
     Indication: Product used for unknown indication
     Dosage: 2 X 400 MG, QD
     Route: 065
  2. DULOXETINE [Interacting]
     Active Substance: DULOXETINE
     Indication: Depressed level of consciousness
     Dosage: 60 MG, QD
     Route: 048

REACTIONS (2)
  - Drug interaction [Unknown]
  - Hyporesponsive to stimuli [Unknown]
